FAERS Safety Report 24552796 (Version 1)
Quarter: 2024Q4

REPORT INFORMATION
  Report Type: Report from Study
  Country: PK (occurrence: PK)
  Receive Date: 20241027
  Receipt Date: 20241027
  Transmission Date: 20250115
  Serious: Yes (Other)
  Sender: ROCHE
  Company Number: PK-ROCHE-10000039862

PATIENT
  Age: 53 Year
  Sex: Female

DRUGS (8)
  1. PERJETA [Suspect]
     Active Substance: PERTUZUMAB
     Indication: Breast cancer metastatic
     Dosage: MOST RECENT DOSEON 29/AUG/2024
     Route: 042
     Dates: start: 20240115, end: 20240920
  2. PERJETA [Suspect]
     Active Substance: PERTUZUMAB
     Dosage: MOST RECENT DOSEON 29/AUG/2024
     Route: 042
     Dates: start: 20240115, end: 20240920
  3. PERJETA [Suspect]
     Active Substance: PERTUZUMAB
     Dosage: MOST RECENT DOSEON 29/AUG/2024
     Route: 042
     Dates: start: 20240115, end: 20240920
  4. HERCEPTIN [Suspect]
     Active Substance: TRASTUZUMAB
     Indication: Breast cancer metastatic
     Dosage: MOST RECENT DOSE ON 29/AUG/2024
     Route: 058
     Dates: start: 20240115, end: 20240920
  5. HERCEPTIN [Suspect]
     Active Substance: TRASTUZUMAB
     Dosage: MOST RECENT DOSE ON 29/AUG/2024
     Route: 058
     Dates: start: 20240115, end: 20240920
  6. HERCEPTIN [Suspect]
     Active Substance: TRASTUZUMAB
     Dosage: MOST RECENT DOSE ON 29/AUG/2024
     Route: 058
     Dates: start: 20240115, end: 20240920
  7. HERCEPTIN [Suspect]
     Active Substance: TRASTUZUMAB
     Dosage: MOST RECENT DOSE ON 29/AUG/2024
     Route: 058
     Dates: start: 20240115, end: 20240920
  8. HERCEPTIN [Suspect]
     Active Substance: TRASTUZUMAB
     Dosage: MOST RECENT DOSE ON 29/AUG/2024
     Route: 058
     Dates: start: 20240115, end: 20240920

REACTIONS (3)
  - Constipation [Recovered/Resolved]
  - Dyspepsia [Recovered/Resolved]
  - Skeletal injury [Unknown]

NARRATIVE: CASE EVENT DATE: 20240725
